FAERS Safety Report 23400377 (Version 1)
Quarter: 2024Q1

REPORT INFORMATION
  Report Type: Spontaneous
  Country: GB (occurrence: GB)
  Receive Date: 20240115
  Receipt Date: 20240115
  Transmission Date: 20240410
  Serious: Yes (Other)
  Sender: FDA-Public Use
  Company Number: GB-ViiV Healthcare Limited-GB2024GSK004183

PATIENT

DRUGS (3)
  1. DOLUTEGRAVIR [Suspect]
     Active Substance: DOLUTEGRAVIR
     Indication: HIV infection
     Dosage: UNK
  2. TRUVADA [Suspect]
     Active Substance: EMTRICITABINE\TENOFOVIR DISOPROXIL FUMARATE
     Indication: HIV infection
     Dosage: UNK
  3. COTRIMOXAZOLE [Concomitant]
     Active Substance: SULFAMETHOXAZOLE\TRIMETHOPRIM
     Indication: Pneumocystis jirovecii pneumonia
     Dosage: UNK

REACTIONS (14)
  - Virologic failure [Unknown]
  - Varicella zoster virus infection [Unknown]
  - Cranial nerve disorder [Recovering/Resolving]
  - Eye pain [Recovering/Resolving]
  - Blindness [Recovering/Resolving]
  - Diplopia [Recovering/Resolving]
  - Facial pain [Recovering/Resolving]
  - Rash vesicular [Recovering/Resolving]
  - Eyelid ptosis [Recovering/Resolving]
  - Visual acuity reduced [Recovering/Resolving]
  - Facial paralysis [Recovering/Resolving]
  - Lymphocytosis [Unknown]
  - Neuralgia [Recovering/Resolving]
  - Treatment noncompliance [Unknown]
